FAERS Safety Report 6594891-6 (Version None)
Quarter: 2010Q1

REPORT INFORMATION
  Report Type: 
  Country: None (occurrence: None)
  Receive Date: 20100222
  Receipt Date: 20100210
  Transmission Date: 20100710
  Serious: Yes (Hospitalization)
  Sender: FDA-Public Use
  Company Number: JP-PFIZER INC-2010017594

PATIENT
  Age: 32 Year
  Sex: Female
  Weight: 49.7 kg

DRUGS (11)
  1. ZOLOFT [Suspect]
     Indication: DEPRESSION
     Dosage: 25 MG, 1X/DAY
     Route: 048
     Dates: start: 20091214, end: 20100110
  2. WARFARIN [Concomitant]
     Route: 048
  3. GASTER [Concomitant]
     Route: 048
  4. MUCOSTA [Concomitant]
     Route: 048
  5. CEREKINON [Concomitant]
     Route: 048
  6. TRACLEER [Concomitant]
     Route: 048
  7. CINAL [Concomitant]
     Route: 048
  8. FERRO-GRADUMET [Concomitant]
     Route: 048
  9. MYSLEE [Concomitant]
     Route: 048
  10. LAC B [Concomitant]
     Route: 048
  11. CRAVIT [Concomitant]
     Route: 048

REACTIONS (3)
  - BACK PAIN [None]
  - DIARRHOEA [None]
  - WHITE BLOOD CELL COUNT DECREASED [None]
